FAERS Safety Report 8975498 (Version 3)
Quarter: 2013Q1

REPORT INFORMATION
  Report Type: Report from Study
  Country: US (occurrence: US)
  Receive Date: 20121219
  Receipt Date: 20130213
  Transmission Date: 20140127
  Serious: No
  Sender: FDA-Public Use
  Company Number: US-VERTEX PHARMACEUTICALS INC.-2012-026380

PATIENT
  Sex: Female
  Weight: 59 kg

DRUGS (12)
  1. VX-950 (TELAPREVIR) [Suspect]
     Indication: HEPATITIS C
     Dosage: 750 MG, TID
     Route: 048
     Dates: start: 20121207
  2. PEGASYS [Suspect]
     Indication: HEPATITIS C
     Dosage: 180 ?G, QW
     Route: 058
     Dates: start: 20121207
  3. RIBASPHERE [Suspect]
     Indication: HEPATITIS C
     Dosage: 400 MG AM, 600 MG PM
     Route: 048
     Dates: start: 20121207
  4. AMBIEN [Concomitant]
     Dosage: 10 MG, PRN
     Route: 048
  5. NEUPOGEN [Concomitant]
     Dosage: 300 ?G, WEEKLY
     Route: 058
  6. VALTREX [Concomitant]
     Dosage: 500 MG, PRN
     Route: 048
  7. VALERIAN ROOT [Concomitant]
     Dosage: 450 MG, UNK
  8. FISH OIL [Concomitant]
     Dosage: 1000 MG, UNK
  9. VITAMIN C [Concomitant]
     Dosage: 500 MG, UNK
  10. MAGNESIUM [Concomitant]
     Dosage: 250 MG, UNK
  11. MELATONIN [Concomitant]
     Dosage: 3 MG, UNK
  12. MULTIPLE VITAMINS [Concomitant]

REACTIONS (5)
  - Insomnia [Unknown]
  - Constipation [Unknown]
  - Faeces hard [Unknown]
  - Injection site rash [Unknown]
  - Rash [Unknown]
